FAERS Safety Report 7052730-3 (Version None)
Quarter: 2010Q4

REPORT INFORMATION
  Report Type: 
  Country: None (occurrence: None)
  Receive Date: 20101019
  Receipt Date: 20101004
  Transmission Date: 20110411
  Serious: Yes (Other)
  Sender: FDA-Public Use
  Company Number: FR-MERCK-1010FRA00048

PATIENT
  Age: 77 Year
  Sex: Female
  Weight: 72 kg

DRUGS (6)
  1. JANUVIA [Suspect]
     Route: 048
     Dates: start: 20090821, end: 20090823
  2. GLICLAZIDE [Concomitant]
     Route: 048
     Dates: start: 20100821
  3. ACEBUTOLOL HYDROCHLORIDE [Concomitant]
     Route: 048
     Dates: start: 20090821
  4. LEVOTHYROXINE SODIUM [Concomitant]
     Route: 048
  5. CHONDROITIN SULFATE SODIUM [Concomitant]
     Route: 048
  6. OMEPRAZOLE [Concomitant]
     Route: 048

REACTIONS (1)
  - APHASIA [None]
